FAERS Safety Report 9518131 (Version 1)
Quarter: 2013Q3

REPORT INFORMATION
  Report Type: Spontaneous
  Country: BR (occurrence: BR)
  Receive Date: 20130912
  Receipt Date: 20130912
  Transmission Date: 20140515
  Serious: Yes (Other)
  Sender: FDA-Public Use
  Company Number: BR-ASTRAZENECA-2013SE67533

PATIENT
  Age: 40 Year
  Sex: Male
  Weight: 82 kg

DRUGS (5)
  1. CRESTOR [Suspect]
     Indication: ARTERIOSCLEROSIS
     Dosage: DAILY
     Route: 048
     Dates: start: 2012, end: 201308
  2. CRESTOR [Suspect]
     Indication: BLOOD CHOLESTEROL INCREASED
     Dosage: DAILY
     Route: 048
     Dates: start: 2012, end: 201308
  3. CRESTOR [Suspect]
     Indication: ARTERIOSCLEROSIS
     Route: 048
     Dates: start: 201308
  4. CRESTOR [Suspect]
     Indication: BLOOD CHOLESTEROL INCREASED
     Route: 048
     Dates: start: 201308
  5. BENICAR [Concomitant]
     Indication: HYPERTENSION

REACTIONS (3)
  - Coronary artery occlusion [Unknown]
  - Blood cholesterol increased [Not Recovered/Not Resolved]
  - Drug ineffective [Unknown]
